FAERS Safety Report 7609930-0 (Version None)
Quarter: 2011Q3

REPORT INFORMATION
  Report Type: 
  Country: None (occurrence: None)
  Receive Date: 20110714
  Receipt Date: 20110703
  Transmission Date: 20111222
  Serious: Yes (Hospitalization)
  Sender: FDA-Public Use
  Company Number: US-BAXTER-2011BH022261

PATIENT

DRUGS (2)
  1. DEXAMETHASONE [Suspect]
     Indication: AUTOIMMUNE THROMBOCYTOPENIA
     Route: 065
  2. RITUXIMAB [Suspect]
     Indication: AUTOIMMUNE THROMBOCYTOPENIA
     Route: 065

REACTIONS (1)
  - COLITIS [None]
